FAERS Safety Report 16935887 (Version 1)
Quarter: 2019Q4

REPORT INFORMATION
  Report Type: Spontaneous
  Country: DK (occurrence: DK)
  Receive Date: 20191018
  Receipt Date: 20191018
  Transmission Date: 20200122
  Serious: Yes (Death, Other)
  Sender: FDA-Public Use
  Company Number: DK-PFIZER INC-2719313

PATIENT
  Age: 80 Year
  Sex: Female

DRUGS (9)
  1. ALPROX [Concomitant]
     Active Substance: ALPRAZOLAM
     Indication: RESTLESSNESS
  2. PERSANTIN [Concomitant]
     Active Substance: DIPYRIDAMOLE
     Indication: THROMBOSIS PROPHYLAXIS
     Dosage: UNK
     Dates: start: 20100101
  3. MEROPENEM. [Suspect]
     Active Substance: MEROPENEM
     Indication: SEPSIS
     Dosage: 1 G, UNK
     Route: 042
     Dates: start: 20140717, end: 20140717
  4. LYRICA [Concomitant]
     Active Substance: PREGABALIN
     Indication: EPILEPSY
  5. CIPROXIN /00697201/ [Concomitant]
     Active Substance: CIPROFLOXACIN
     Indication: PRODUCT USED FOR UNKNOWN INDICATION
  6. TRIOBE /01079901/ [Concomitant]
     Indication: SUPPLEMENTATION THERAPY
     Dosage: UNK
     Dates: start: 20130101
  7. KEPPRA [Concomitant]
     Active Substance: LEVETIRACETAM
     Indication: EPILEPSY
  8. NITRAZEPAM [Concomitant]
     Active Substance: NITRAZEPAM
     Indication: INSOMNIA
     Dosage: UNK
     Dates: start: 20110101
  9. UNIKALK BASIC [Concomitant]
     Indication: PRODUCT USED FOR UNKNOWN INDICATION
     Dosage: UNK
     Dates: start: 20110101

REACTIONS (10)
  - Anaphylactic shock [Fatal]
  - Cardiac arrest [Fatal]
  - Pulmonary embolism [Fatal]
  - Angioedema [Not Recovered/Not Resolved]
  - Cyanosis [Not Recovered/Not Resolved]
  - Arrhythmia [Not Recovered/Not Resolved]
  - Blood pressure decreased [Not Recovered/Not Resolved]
  - Dyspnoea [Not Recovered/Not Resolved]
  - Hyperkalaemia [Not Recovered/Not Resolved]
  - Disease recurrence [Not Recovered/Not Resolved]

NARRATIVE: CASE EVENT DATE: 20140717
